FAERS Safety Report 6383873-5 (Version None)
Quarter: 2009Q4

REPORT INFORMATION
  Report Type: 
  Country: None (occurrence: None)
  Receive Date: 20091001
  Receipt Date: 20090901
  Transmission Date: 20100525
  Serious: No
  Sender: FDA-Public Use
  Company Number: US-BAYER-200914214BCC

PATIENT
  Age: 74 Year
  Sex: Female
  Weight: 70 kg

DRUGS (3)
  1. ALEVE [Suspect]
     Indication: ARTHRITIS
     Dosage: TOTAL DAILY DOSE: 880 MG  UNIT DOSE: 220 MG
     Route: 048
     Dates: start: 20090827, end: 20090831
  2. VITAMIN B COMPLEX CAP [Concomitant]
  3. ASCORBIC ACID [Concomitant]

REACTIONS (2)
  - MUSCLE SPASMS [None]
  - POLLAKIURIA [None]
